FAERS Safety Report 8403340-4 (Version None)
Quarter: 2012Q2

REPORT INFORMATION
  Report Type: 
  Country: None (occurrence: None)
  Receive Date: 20120601
  Receipt Date: 20120524
  Transmission Date: 20120825
  Serious: Yes (Hospitalization, Other)
  Sender: FDA-Public Use
  Company Number: US-B.I. PHARMACEUTICALS,INC./RIDGEFIELD-2012-BP-09741BP

PATIENT
  Sex: Male

DRUGS (1)
  1. PRADAXA [Suspect]
     Indication: ANTICOAGULANT THERAPY
     Dates: start: 20110222, end: 20110423

REACTIONS (4)
  - CEREBROVASCULAR ACCIDENT [None]
  - INJURY [None]
  - CEREBRAL HAEMORRHAGE [None]
  - FOOT AMPUTATION [None]
